FAERS Safety Report 18418462 (Version 3)
Quarter: 2020Q4

REPORT INFORMATION
  Report Type: Spontaneous
  Country: JP (occurrence: JP)
  Receive Date: 20201023
  Receipt Date: 20201124
  Transmission Date: 20210114
  Serious: Yes (Hospitalization, Other)
  Sender: FDA-Public Use
  Company Number: JP-009507513-2010JPN008738

PATIENT
  Age: 87 Year
  Sex: Male

DRUGS (2)
  1. GLACTIV [Suspect]
     Active Substance: SITAGLIPTIN
     Indication: TYPE 2 DIABETES MELLITUS
     Dosage: 50 MG, EVERYDAY
     Route: 048
     Dates: start: 20160610, end: 20200319
  2. INSULIN [Concomitant]
     Active Substance: INSULIN NOS
     Dosage: ONCE DAILY
     Route: 065

REACTIONS (1)
  - Seronegative arthritis [Recovered/Resolved]

NARRATIVE: CASE EVENT DATE: 20200107
